FAERS Safety Report 24392141 (Version 1)
Quarter: 2024Q4

REPORT INFORMATION
  Report Type: Spontaneous
  Country: EG (occurrence: EG)
  Receive Date: 20241003
  Receipt Date: 20241003
  Transmission Date: 20250115
  Serious: Yes (Other)
  Sender: ELI LILLY AND CO
  Company Number: EG-ELI_LILLY_AND_COMPANY-EG202409015109

PATIENT
  Age: 53 Year
  Sex: Male
  Weight: 113 kg

DRUGS (1)
  1. FORTEO [Suspect]
     Active Substance: TERIPARATIDE
     Indication: Hypoparathyroidism
     Dosage: UNK UNK, UNKNOWN
     Route: 058
     Dates: start: 20231012

REACTIONS (2)
  - Blood growth hormone increased [Not Recovered/Not Resolved]
  - Off label use [Unknown]

NARRATIVE: CASE EVENT DATE: 20240305
